FAERS Safety Report 4760112-X (Version None)
Quarter: 2005Q3

REPORT INFORMATION
  Report Type: 
  Country: None (occurrence: None)
  Receive Date: 20050902
  Receipt Date: 20050527
  Transmission Date: 20060218
  Serious: No
  Sender: FDA-Public Use
  Company Number: US-GLAXOSMITHKLINE-A0560390A

PATIENT
  Age: 40 Year
  Sex: Female
  Weight: 68.6 kg

DRUGS (2)
  1. REQUIP [Suspect]
     Dosage: .25MG SINGLE DOSE
     Route: 048
  2. SSRI [Concomitant]

REACTIONS (4)
  - DIZZINESS [None]
  - FEELING ABNORMAL [None]
  - HYPOAESTHESIA [None]
  - MUSCLE DISORDER [None]
